FAERS Safety Report 23776143 (Version 1)
Quarter: 2024Q2

REPORT INFORMATION
  Report Type: Spontaneous
  Country: US (occurrence: US)
  Receive Date: 20240424
  Receipt Date: 20240424
  Transmission Date: 20240716
  Serious: No
  Sender: FDA-Public Use
  Company Number: US-ABBVIE-5728381

PATIENT
  Sex: Male

DRUGS (1)
  1. HUMIRA [Suspect]
     Active Substance: ADALIMUMAB
     Indication: Polychondritis
     Dosage: FORM STRENGTH: 40 MG?DURATION TEXT: 7 TO 11 MONTHS
     Route: 058

REACTIONS (1)
  - Off label use [Not Recovered/Not Resolved]
